FAERS Safety Report 6789295-7 (Version None)
Quarter: 2010Q2

REPORT INFORMATION
  Report Type: 
  Country: None (occurrence: None)
  Receive Date: 20100623
  Receipt Date: 20090521
  Transmission Date: 20101027
  Serious: Yes (Other)
  Sender: FDA-Public Use
  Company Number: US-PFIZER INC-2008056598

PATIENT
  Sex: Female
  Weight: 72 kg

DRUGS (6)
  1. PROVERA [Suspect]
     Indication: HORMONE REPLACEMENT THERAPY
     Dosage: 10 MG, UNK
     Route: 048
     Dates: start: 19850220, end: 19880317
  2. PREMARIN [Suspect]
     Indication: HORMONE REPLACEMENT THERAPY
     Dosage: 0.625 MG, UNK
     Dates: start: 19850220, end: 19880317
  3. CONTRACEPTIVE, UNSPECIFIED [Suspect]
     Indication: CONTRACEPTION
     Dosage: UNK
     Dates: start: 19680101, end: 19680101
  4. VANCERIL [Concomitant]
     Indication: ASTHMA
     Dosage: UNK
     Route: 045
     Dates: start: 19670101
  5. ADAPIN [Concomitant]
     Indication: MIGRAINE
     Dosage: UNK
     Dates: start: 19820101
  6. SYNTHROID [Concomitant]
     Indication: THYROID DISORDER
     Dosage: UNK
     Dates: start: 19840101

REACTIONS (1)
  - BREAST CANCER FEMALE [None]
